FAERS Safety Report 5701777-5 (Version None)
Quarter: 2008Q2

REPORT INFORMATION
  Report Type: 
  Country: None (occurrence: None)
  Receive Date: 20080410
  Receipt Date: 20080410
  Transmission Date: 20081010
  Serious: Yes (Hospitalization, Other)
  Sender: FDA-Public Use
  Company Number: None

PATIENT
  Age: 50 Year
  Sex: Female
  Weight: 55.7924 kg

DRUGS (2)
  1. BUTLBTL/APAP/CAFF [Suspect]
     Indication: HEADACHE
     Dosage: 50/325/40 1 4XS A DAY
     Dates: start: 20080315
  2. CEPHALEXIN [Suspect]
     Dosage: 250MG 1 3XS A DAY
     Dates: start: 20080314

REACTIONS (4)
  - GRAND MAL CONVULSION [None]
  - HEADACHE [None]
  - NO THERAPEUTIC RESPONSE [None]
  - VOMITING [None]
